FAERS Safety Report 9774284 (Version 3)
Quarter: 2014Q2

REPORT INFORMATION
  Report Type: Spontaneous
  Country: US (occurrence: US)
  Receive Date: 20131220
  Receipt Date: 20140513
  Transmission Date: 20141212
  Serious: Yes (Hospitalization)
  Sender: FDA-Public Use
  Company Number: US-JNJFOC-20131207535

PATIENT
  Age: 78 Year
  Sex: Male
  Weight: 74.39 kg

DRUGS (16)
  1. XARELTO [Suspect]
     Indication: EMBOLISM VENOUS
     Route: 048
     Dates: start: 20131204, end: 20131210
  2. XARELTO [Suspect]
     Indication: PROPHYLAXIS
     Route: 048
     Dates: start: 20131204, end: 20131210
  3. XARELTO [Suspect]
     Indication: THROMBOSIS PROPHYLAXIS
     Route: 048
     Dates: start: 20131204, end: 20131210
  4. XARELTO [Suspect]
     Indication: KNEE ARTHROPLASTY
     Route: 048
     Dates: start: 20131204, end: 20131210
  5. ACETAMINOPHEN [Concomitant]
     Dosage: Q6HPRM
     Route: 048
  6. BISACODYL [Concomitant]
     Dosage: EVERY MORNING
     Route: 065
  7. FINASTERIDE [Concomitant]
     Route: 048
  8. NASONEX [Concomitant]
     Dosage: 2 SPRAYS EACH NOSTRIL AT BEDTIME.
     Route: 045
  9. HYDROCHLOROTHIAZIDE [Concomitant]
     Dosage: QPM
     Route: 065
  10. NORCO [Concomitant]
     Dosage: NORCO 10/325 1-2 TABLETS QID
     Route: 065
  11. LEVOFLOXACIN [Concomitant]
     Route: 042
  12. SAW PALMETTO [Concomitant]
     Route: 048
  13. TERAZOSIN [Concomitant]
     Route: 048
  14. VITAMIN C [Concomitant]
     Route: 048
  15. CALCIUM CARBONATE [Concomitant]
     Route: 048
  16. MULTIVITAMINS [Concomitant]
     Route: 048

REACTIONS (4)
  - Atrial fibrillation [Unknown]
  - Pneumonia [Recovering/Resolving]
  - Pulmonary embolism [Recovering/Resolving]
  - Drug dose omission [Unknown]
